FAERS Safety Report 21278036 (Version 1)
Quarter: 2022Q3

REPORT INFORMATION
  Report Type: Spontaneous
  Country: US (occurrence: US)
  Receive Date: 20220831
  Receipt Date: 20220831
  Transmission Date: 20221027
  Serious: No
  Sender: FDA-Public Use
  Company Number: US-ABBVIE-22K-163-4259078-00

PATIENT
  Age: 47 Year
  Sex: Female

DRUGS (3)
  1. HUMIRA [Suspect]
     Active Substance: ADALIMUMAB
     Indication: Psoriatic arthropathy
     Route: 058
     Dates: start: 202112
  2. ESTROGENS [Concomitant]
     Active Substance: ESTROGENS
     Indication: Hysterectomy
     Dosage: PATCH
  3. ESTROGENS [Concomitant]
     Active Substance: ESTROGENS
     Indication: Hysterectomy
     Dosage: INTRAVAGINAL RING

REACTIONS (5)
  - Injection site haemorrhage [Recovered/Resolved]
  - Injection site extravasation [Unknown]
  - Device issue [Unknown]
  - Device issue [Unknown]
  - Incorrect dose administered [Unknown]

NARRATIVE: CASE EVENT DATE: 20220127
